FAERS Safety Report 7237134 (Version 5)
Quarter: 2013Q4

REPORT INFORMATION
  Report Type: Spontaneous
  Country: US (occurrence: US)
  Receive Date: 20100105
  Receipt Date: 20131213
  Transmission Date: 20140711
  Serious: Yes (Other)
  Sender: FDA-Public Use
  Company Number: US-BAYER-200943996NA

PATIENT
  Age: 21 Year
  Sex: Female
  Weight: 50 kg

DRUGS (16)
  1. YASMIN [Suspect]
     Dates: start: 200811
  2. YAZ [Suspect]
     Indication: MENSTRUATION IRREGULAR
     Dates: start: 200811
  3. ADVAIR DISKUS [Concomitant]
     Dosage: 1 PUFF(S), BID
  4. ALBUTEROL [Concomitant]
     Dosage: 1 PUFF(S), PRN
  5. LORATADINE [Concomitant]
     Dosage: 10 MG/24HR, UNK
  6. SINGULAIR [Concomitant]
     Dosage: 10 MG/24HR, UNK
  7. TOPAMAX [Concomitant]
     Indication: CONVULSION
     Dosage: 1 UNK, UNK
  8. VENTOLIN [Concomitant]
  9. PRILOSEC [Concomitant]
  10. MULTIVITAMIN [Concomitant]
  11. ACCOLATE [Concomitant]
  12. ADVAIR [Concomitant]
  13. AMOXICILINA CLAV [Concomitant]
     Dosage: 500 MG, TID
     Route: 048
  14. AMOXICILINA CLAV [Concomitant]
     Dosage: 125 MG, TID
     Route: 048
  15. ASTEPRO [Concomitant]
     Dosage: 0.137 ?G, BID
  16. HYOSCYAMINE [Concomitant]
     Dosage: 0.375 MG, BID

REACTIONS (14)
  - Cholecystitis chronic [Unknown]
  - Biliary dyskinesia [None]
  - Gallbladder disorder [None]
  - Vomiting [Unknown]
  - Musculoskeletal chest pain [Unknown]
  - Nausea [Unknown]
  - Fat intolerance [Unknown]
  - Decreased appetite [Unknown]
  - Abdominal distension [Unknown]
  - Abdominal pain upper [Unknown]
  - Gastrooesophageal reflux disease [Unknown]
  - Ejection fraction decreased [Unknown]
  - Dyspepsia [Unknown]
  - Abdominal pain [None]
